FAERS Safety Report 6577667-5 (Version None)
Quarter: 2010Q1

REPORT INFORMATION
  Report Type: 
  Country: None (occurrence: None)
  Receive Date: 20100211
  Receipt Date: 20100203
  Transmission Date: 20100710
  Serious: Yes (Other)
  Sender: FDA-Public Use
  Company Number: PHHY2009BR48713

PATIENT
  Sex: Female

DRUGS (1)
  1. ACLASTA [Suspect]
     Dosage: 5 MG, UNK
     Route: 042

REACTIONS (10)
  - ABDOMINAL PAIN UPPER [None]
  - ANXIETY [None]
  - DECREASED ACTIVITY [None]
  - HAEMORRHOIDS [None]
  - HEADACHE [None]
  - HYPERSENSITIVITY [None]
  - MOVEMENT DISORDER [None]
  - PAIN [None]
  - PYREXIA [None]
  - VISUAL IMPAIRMENT [None]
